FAERS Safety Report 19044585 (Version 1)
Quarter: 2021Q1

REPORT INFORMATION
  Report Type: Spontaneous
  Country: US (occurrence: US)
  Receive Date: 20210322
  Receipt Date: 20210322
  Transmission Date: 20210420
  Serious: Yes (Other)
  Sender: FDA-Public Use
  Company Number: US-GLAXOSMITHKLINE-US2021062748

PATIENT
  Sex: Female

DRUGS (6)
  1. AMIKACINA [Suspect]
     Active Substance: AMIKACIN SULFATE
     Indication: PRODUCT USED FOR UNKNOWN INDICATION
     Dosage: UNK
  2. B12 INJECTION [Concomitant]
     Indication: PRODUCT USED FOR UNKNOWN INDICATION
     Dosage: UNK
  3. NUCALA [Suspect]
     Active Substance: MEPOLIZUMAB
     Indication: BRONCHIECTASIS
     Dosage: 100 MG, CYC
     Route: 058
  4. NUCALA [Suspect]
     Active Substance: MEPOLIZUMAB
     Indication: BRONCHIECTASIS
     Dosage: 100 MG, CYC
     Route: 058
  5. NUCALA [Suspect]
     Active Substance: MEPOLIZUMAB
     Indication: ASTHMA
  6. NUCALA [Suspect]
     Active Substance: MEPOLIZUMAB
     Indication: ASTHMA

REACTIONS (6)
  - Mycobacterium avium complex infection [Not Recovered/Not Resolved]
  - Somnolence [Unknown]
  - Product use in unapproved indication [Unknown]
  - Dysphonia [Not Recovered/Not Resolved]
  - Eosinophilic granulomatosis with polyangiitis [Unknown]
  - Fatigue [Unknown]

NARRATIVE: CASE EVENT DATE: 2018
